FAERS Safety Report 5498426-0 (Version None)
Quarter: 2007Q4

REPORT INFORMATION
  Report Type: 
  Country: None (occurrence: None)
  Receive Date: 20071024
  Receipt Date: 20071010
  Transmission Date: 20080405
  Serious: Yes (Death)
  Sender: FDA-Public Use
  Company Number: HECT-10295

PATIENT
  Age: 75 Year
  Sex: Male

DRUGS (1)
  1. HECTOROL [Suspect]
     Indication: HYPERPARATHYROIDISM SECONDARY
     Dosage: 2.5 MCG TIW PO
     Route: 048
     Dates: start: 20060112

REACTIONS (3)
  - CARDIOPULMONARY FAILURE [None]
  - CENTRAL NERVOUS SYSTEM INFECTION [None]
  - NIPPLE PAIN [None]
